FAERS Safety Report 19088630 (Version 3)
Quarter: 2021Q3

REPORT INFORMATION
  Report Type: Spontaneous
  Country: US (occurrence: US)
  Receive Date: 20210402
  Receipt Date: 20210824
  Transmission Date: 20211014
  Serious: Yes (Other)
  Sender: FDA-Public Use
  Company Number: US-INTERNATIONAL MEDICATION SYSTEMS, LIMITED-2108860

PATIENT
  Age: 65 Year
  Sex: Male
  Weight: 41.7 kg

DRUGS (3)
  1. LIDOCAINE HYDROCHLORIDE. [Suspect]
     Active Substance: LIDOCAINE HYDROCHLORIDE
     Route: 039
     Dates: start: 20210319, end: 20210319
  2. LARYNG?O?JET INJECTOR [Suspect]
     Active Substance: DEVICE
  3. LARYNG?O?JET INJECTOR [Suspect]
     Active Substance: DEVICE

REACTIONS (2)
  - Foreign body in respiratory tract [Recovered/Resolved]
  - Removal of foreign body [Recovered/Resolved]

NARRATIVE: CASE EVENT DATE: 20210319
